FAERS Safety Report 7416434-7 (Version None)
Quarter: 2011Q2

REPORT INFORMATION
  Report Type: 
  Country: None (occurrence: None)
  Receive Date: 20110414
  Receipt Date: 20110411
  Transmission Date: 20111010
  Serious: Yes (Death, Other)
  Sender: FDA-Public Use
  Company Number: US-AMGEN-QUU400442

PATIENT
  Age: 62 Year
  Sex: Female

DRUGS (3)
  1. CORTICOSTEROID NOS [Concomitant]
  2. NPLATE [Suspect]
     Dates: start: 20100226
  3. NPLATE [Suspect]
     Indication: THROMBOCYTOPENIA
     Dosage: UNK UNK, UNK
     Dates: start: 20100226

REACTIONS (3)
  - DRUG INEFFECTIVE [None]
  - LIVER TRANSPLANT REJECTION [None]
  - THROMBOCYTOPENIA [None]
